FAERS Safety Report 8444623-1 (Version None)
Quarter: 2012Q2

REPORT INFORMATION
  Report Type: 
  Country: None (occurrence: None)
  Receive Date: 20120618
  Receipt Date: 20120614
  Transmission Date: 20120825
  Serious: Yes (Other)
  Sender: FDA-Public Use
  Company Number: CA-PFIZER INC-2012121288

PATIENT
  Age: 52 Year
  Sex: Female

DRUGS (7)
  1. CLONAZEPAM [Concomitant]
     Dosage: UNK
  2. LYRICA [Suspect]
     Indication: FIBROMYALGIA
     Dosage: 75 MG, 1X/DAY
     Route: 048
     Dates: start: 20120401, end: 20120101
  3. PAROXETINE HCL [Concomitant]
     Dosage: UNK
  4. LYRICA [Suspect]
     Dosage: 75 MG, 3X/DAY
     Route: 048
     Dates: start: 20120101
  5. OXYCET [Concomitant]
     Dosage: UNK
  6. LYRICA [Suspect]
     Dosage: 75 MG, 2X/DAY
     Route: 048
     Dates: start: 20120101, end: 20120101
  7. TRAZODONE [Concomitant]
     Dosage: UNK

REACTIONS (8)
  - MENORRHAGIA [None]
  - PAIN IN EXTREMITY [None]
  - FIBROUS HISTIOCYTOMA [None]
  - SUPERFICIAL VEIN PROMINENCE [None]
  - ARTHRALGIA [None]
  - FATIGUE [None]
  - HAEMORRHAGE [None]
  - CONTUSION [None]
